FAERS Safety Report 16853604 (Version 4)
Quarter: 2021Q1

REPORT INFORMATION
  Report Type: Spontaneous
  Country: US (occurrence: US)
  Receive Date: 20190926
  Receipt Date: 20210225
  Transmission Date: 20210419
  Serious: Yes (Disabling, Other)
  Sender: FDA-Public Use
  Company Number: US-TEVA-2019-US-1112929

PATIENT
  Age: 65 Year
  Sex: Female
  Weight: 63.5 kg

DRUGS (38)
  1. SENNA [Concomitant]
     Active Substance: SENNA LEAF\SENNOSIDES\SENNOSIDES A AND B
     Indication: CONSTIPATION
     Dosage: 8.6 MG EVERY NIGHT
     Route: 048
  2. DOCETAXEL SAGENT [Suspect]
     Active Substance: DOCETAXEL
     Dosage: 20MG
     Route: 065
  3. DOCETAXEL WINTHROP [Suspect]
     Active Substance: DOCETAXEL
     Indication: BREAST CANCER
     Dosage: DOSAGE : 80MG, NUMBER OF CYCLES : 5, FREQUENCY ? EVERY THREE WEEKS
     Route: 065
     Dates: start: 20150908, end: 20151202
  4. HERCEPTIN [Suspect]
     Active Substance: TRASTUZUMAB
     Indication: BREAST CANCER
     Dosage: DOSAGE : 568 MG, CYCLE 1
     Dates: start: 20150908
  5. HERCEPTIN [Suspect]
     Active Substance: TRASTUZUMAB
     Dosage: DOSAGE : 413 MG , CYCLE 5
     Dates: start: 20151202
  6. PERJETA [Suspect]
     Active Substance: PERTUZUMAB
     Dosage: DOSAGE : 420 MG, CYCLE 4
     Route: 042
     Dates: start: 20151110
  7. BENZONATATE. [Concomitant]
     Active Substance: BENZONATATE
     Indication: COUGH
     Dosage: 100 MF, CAPSULE 3 TIMES A DAY
     Route: 048
  8. HERCEPTIN [Suspect]
     Active Substance: TRASTUZUMAB
     Dosage: DOSAGE : 424 MG, CYCLE 2
     Dates: start: 20150929
  9. PERJETA [Suspect]
     Active Substance: PERTUZUMAB
     Indication: BREAST CANCER
     Dosage: DOSAGE : 840 MG/DOSE, CYCLE 1
     Route: 042
     Dates: start: 20150908
  10. PERJETA [Suspect]
     Active Substance: PERTUZUMAB
     Dosage: DOSAGE :420 MG CYCLE 3
     Route: 042
     Dates: start: 20151020
  11. AVELOX [Concomitant]
     Active Substance: MOXIFLOXACIN HYDROCHLORIDE
     Dosage: 400 MILLIGRAM DAILY;
     Route: 048
     Dates: end: 20150930
  12. LMODIUM A?D [Concomitant]
     Indication: DIARRHOEA
     Dosage: 2 MG, ONE TABLET PER 4 HOURS
     Route: 048
  13. LIDOCAINE. [Concomitant]
     Active Substance: LIDOCAINE
     Dosage: 5 PERCENT, ONCE A DAY
     Route: 061
  14. METOPROLOL TARTRATE. [Concomitant]
     Active Substance: METOPROLOL TARTRATE
     Dosage: 25 MG TWICE A DAY
     Route: 048
  15. DOCETAXEL SAGENT [Suspect]
     Active Substance: DOCETAXEL
     Indication: BREAST CANCER
     Dosage: DOSAGE :80MG, NUMBER OF CYCLES : 5, FREQUENCY ? EVERY THREE WEEKS
     Route: 065
     Dates: start: 20150908, end: 20151202
  16. TAXOTERE [Suspect]
     Active Substance: DOCETAXEL
     Indication: BREAST CANCER
     Route: 065
  17. HERCEPTIN [Suspect]
     Active Substance: TRASTUZUMAB
     Dosage: DOSAGE :414 MG, CYCLE 3
     Dates: start: 20151020
  18. PERJETA [Suspect]
     Active Substance: PERTUZUMAB
     Dosage: DOSAGE : 420 MG , CYCLE 5
     Route: 042
     Dates: start: 20151202
  19. MORPHINE [Concomitant]
     Active Substance: MORPHINE
     Indication: PAIN
     Dosage: 15MG ONCE PER 4 HOURS, AS NEEDED
     Route: 048
  20. PERCOCET [Concomitant]
     Active Substance: ACETAMINOPHEN\OXYCODONE HYDROCHLORIDE
     Indication: PAIN
     Dosage: 5/325 ONCE PER 4 HOURS
     Route: 048
  21. PERJETA [Suspect]
     Active Substance: PERTUZUMAB
     Dosage: DOSAGE : 420 MG/DOSE, CYCLE 2
     Route: 042
     Dates: start: 20150929
  22. OXYCODONE [Concomitant]
     Active Substance: OXYCODONE
     Indication: VOMITING
  23. PROCHLORPERAZINE. [Concomitant]
     Active Substance: PROCHLORPERAZINE
  24. DOCETAXEL HOSPIRA [Suspect]
     Active Substance: DOCETAXEL
     Indication: BREAST CANCER
     Dosage: DOSAGE :80MG,NUMBER OF CYCLES : 5, FREQUENCY ? EVERY THREE WEEKS
     Route: 065
     Dates: start: 20150908, end: 20151202
  25. OXYCODONE [Concomitant]
     Active Substance: OXYCODONE
     Indication: NAUSEA
     Dosage: 10MG 4 TIMES A DAY
     Route: 048
  26. CYCLOBENZAPRINE. [Concomitant]
     Active Substance: CYCLOBENZAPRINE
     Indication: MUSCLE SPASMS
     Dosage: 15 MILLIGRAM DAILY; 5 MG TABLET 3 TIMES A DAY
     Route: 048
  27. DEXAMETHASONE. [Concomitant]
     Active Substance: DEXAMETHASONE
     Dosage: 4MG
     Route: 048
  28. LYRICA [Concomitant]
     Active Substance: PREGABALIN
     Indication: PAIN
     Dosage: 50MG TWICE A DAY
     Route: 048
  29. RANITIDINE. [Concomitant]
     Active Substance: RANITIDINE
     Dosage: 15MG/ML TWICE A DAY
     Route: 048
  30. DOCETAXEL ACCORD [Suspect]
     Active Substance: DOCETAXEL
     Indication: BREAST CANCER
     Dosage: DOSAGE :80MG, NUMBER OF CYCLES : 5, FREQUENCY ? EVERY THREE WEEKS
     Route: 065
     Dates: start: 20150908, end: 20151202
  31. NIFEDICAL XL [Concomitant]
     Active Substance: NIFEDIPINE
     Dosage: 60 MILLIGRAM DAILY;
     Route: 048
  32. MS CONTIN [Concomitant]
     Active Substance: MORPHINE SULFATE
     Dosage: 15MG ONCE PER 12 HOURS
     Route: 048
  33. ESOMEPRAZOLE. [Concomitant]
     Active Substance: ESOMEPRAZOLE MAGNESIUM
     Dosage: 40 MILLIGRAM DAILY;
     Route: 048
  34. HYDROCHLOROTHIAZIDE. [Concomitant]
     Active Substance: HYDROCHLOROTHIAZIDE
     Dosage: 25 MILLIGRAM DAILY;
     Route: 048
  35. COLACE [Concomitant]
     Active Substance: DOCUSATE SODIUM
     Dosage: 100 MG TWICE A DAY
     Route: 048
  36. DOCETAXEL SANDOZ [Suspect]
     Active Substance: DOCETAXEL
     Indication: BREAST CANCER
     Dosage: DOSAGE :80MG, NUMBER OF CYCLES : 5, FREQUENCY ? EVERY THREE WEEKS
     Route: 065
     Dates: start: 20150908, end: 20151202
  37. HERCEPTIN [Suspect]
     Active Substance: TRASTUZUMAB
     Dosage: DOSAGE : 416 MG, CYCLE 4
     Dates: start: 20151110
  38. NEULASTA [Suspect]
     Active Substance: PEGFILGRASTIM
     Indication: BREAST CANCER
     Dosage: DOSAGE : 6 MG ,  CYCLE 1
     Route: 058
     Dates: start: 20150908

REACTIONS (11)
  - Alopecia [Not Recovered/Not Resolved]
  - Madarosis [Not Recovered/Not Resolved]
  - Hair texture abnormal [Not Recovered/Not Resolved]
  - Headache [Recovered/Resolved]
  - Diarrhoea [Recovered/Resolved]
  - Back pain [Not Recovered/Not Resolved]
  - Leukocytosis [Not Recovered/Not Resolved]
  - Peripheral swelling [Not Recovered/Not Resolved]
  - Nausea [Recovered/Resolved]
  - Fatigue [Recovered/Resolved]
  - Hair colour changes [Not Recovered/Not Resolved]

NARRATIVE: CASE EVENT DATE: 2015
